FAERS Safety Report 11370456 (Version 2)
Quarter: 2015Q4

REPORT INFORMATION
  Report Type: Report from Study
  Country: US (occurrence: US)
  Receive Date: 20150812
  Receipt Date: 20151001
  Transmission Date: 20160304
  Serious: Yes (Hospitalization)
  Sender: FDA-Public Use
  Company Number: US-MALLINCKRODT-T201503717

PATIENT
  Age: 41 Year
  Sex: Male

DRUGS (3)
  1. REPOSITORY CORTICOTROPIN INJECTION [Suspect]
     Active Substance: CORTICOTROPIN
     Dosage: 80 UNITS TWICE PER WEEK
     Route: 058
     Dates: start: 201507
  2. OXYGEN. [Concomitant]
     Active Substance: OXYGEN
     Indication: PULMONARY SARCOIDOSIS
     Dosage: 4 LITER, CONTINUOUSLY
     Route: 045
  3. REPOSITORY CORTICOTROPIN INJECTION [Suspect]
     Active Substance: CORTICOTROPIN
     Indication: PULMONARY SARCOIDOSIS
     Dosage: 80 UNITS TWICE PER WEEK
     Route: 058
     Dates: start: 20150420, end: 201507

REACTIONS (4)
  - Lung disorder [Recovered/Resolved]
  - Cardiac failure congestive [Recovered/Resolved]
  - Fungal skin infection [Recovering/Resolving]
  - Dyspnoea [Not Recovered/Not Resolved]

NARRATIVE: CASE EVENT DATE: 201507
